FAERS Safety Report 25955458 (Version 1)
Quarter: 2025Q4

REPORT INFORMATION
  Report Type: Spontaneous
  Country: US (occurrence: US)
  Receive Date: 20251024
  Receipt Date: 20251024
  Transmission Date: 20260117
  Serious: Yes (Hospitalization)
  Sender: HIKMA
  Company Number: US-HIKMA PHARMACEUTICALS USA INC.-US-H14001-25-11130

PATIENT
  Age: 40 Year
  Sex: Male

DRUGS (3)
  1. AMIODARONE [Suspect]
     Active Substance: AMIODARONE
     Indication: Arrhythmic storm
     Dosage: UNKNOWN
     Route: 042
  2. LIDOCAINE HYDROCHLORIDE [Suspect]
     Active Substance: LIDOCAINE HYDROCHLORIDE
     Indication: Arrhythmic storm
     Dosage: UNKNOWN
     Route: 042
  3. ROPIVACAINE [Suspect]
     Active Substance: ROPIVACAINE
     Indication: Arrhythmic storm
     Dosage: UNKNOWN
     Route: 065

REACTIONS (1)
  - Arrhythmic storm [Unknown]
